FAERS Safety Report 16827792 (Version 1)
Quarter: 2019Q3

REPORT INFORMATION
  Report Type: Spontaneous
  Country: CN (occurrence: CN)
  Receive Date: 20190919
  Receipt Date: 20190919
  Transmission Date: 20191005
  Serious: Yes (Hospitalization)
  Sender: FDA-Public Use
  Company Number: CN-PFIZER INC-2019393935

PATIENT
  Age: 42 Year
  Sex: Male
  Weight: 75 kg

DRUGS (7)
  1. MOXIFLOXACIN. [Concomitant]
     Active Substance: MOXIFLOXACIN
     Indication: ANTI-INFECTIVE THERAPY
     Dosage: UNK
  2. AZITHROMYCIN ANHYDROUS. [Concomitant]
     Active Substance: AZITHROMYCIN ANHYDROUS
     Indication: PRODUCTIVE COUGH
     Dosage: UNK
     Route: 041
     Dates: start: 20160516, end: 20160525
  3. RIBAVIRIN. [Concomitant]
     Active Substance: RIBAVIRIN
     Indication: PRODUCTIVE COUGH
     Dosage: UNK
     Route: 041
     Dates: start: 20160516, end: 20160525
  4. MEROPENEM. [Suspect]
     Active Substance: MEROPENEM
     Dosage: 0.5 G, 4X/DAY
     Dates: start: 20160607, end: 20160611
  5. MEROPENEM. [Suspect]
     Active Substance: MEROPENEM
     Indication: INFECTION
     Dosage: UNK
     Route: 041
     Dates: start: 20160527, end: 20160606
  6. HEPARIN [Concomitant]
     Active Substance: HEPARIN SODIUM
     Indication: ANTICOAGULANT THERAPY
     Dosage: UNK
     Route: 065
     Dates: start: 20160606, end: 20160607
  7. MOXIFAR [Concomitant]
     Indication: INFECTION
     Dosage: UNK
     Route: 065
     Dates: start: 20160527, end: 20160606

REACTIONS (6)
  - Hypersensitivity [Recovered/Resolved]
  - Pruritus allergic [Recovered/Resolved]
  - Drug eruption [Recovered/Resolved]
  - Flushing [Recovered/Resolved]
  - Pyrexia [Recovered/Resolved]
  - Swelling face [Recovered/Resolved]

NARRATIVE: CASE EVENT DATE: 20160605
